FAERS Safety Report 6975141-5 (Version None)
Quarter: 2010Q3

REPORT INFORMATION
  Report Type: 
  Country: None (occurrence: None)
  Receive Date: 20100910
  Receipt Date: 20090204
  Transmission Date: 20110219
  Serious: No
  Sender: FDA-Public Use
  Company Number: US-WYE-H08094309

PATIENT
  Sex: Female

DRUGS (3)
  1. PRISTIQ [Suspect]
     Indication: DEPRESSION
     Route: 048
     Dates: start: 20090201, end: 20090201
  2. PRISTIQ [Suspect]
     Dosage: SPLIT THE 50 MG TABLET AS PER PHYSICIAN'S ADVICE
     Route: 048
     Dates: start: 20090202, end: 20090203
  3. PRISTIQ [Suspect]
     Route: 048
     Dates: start: 20090204

REACTIONS (5)
  - ANXIETY [None]
  - DIZZINESS [None]
  - HEADACHE [None]
  - NAUSEA [None]
  - SLUGGISHNESS [None]
